FAERS Safety Report 6728211-0 (Version None)
Quarter: 2010Q2

REPORT INFORMATION
  Report Type: 
  Country: None (occurrence: None)
  Receive Date: 20100517
  Receipt Date: 20100507
  Transmission Date: 20101027
  Serious: Yes (Hospitalization)
  Sender: FDA-Public Use
  Company Number: Z0003507A

PATIENT
  Age: 66 Year
  Sex: Female
  Weight: 55.3 kg

DRUGS (3)
  1. GW642444 [Suspect]
     Indication: CHRONIC OBSTRUCTIVE PULMONARY DISEASE
     Dosage: 25MCG PER DAY
     Route: 055
     Dates: start: 20100118
  2. ADVAIR DISKUS 100/50 [Suspect]
     Indication: CHRONIC OBSTRUCTIVE PULMONARY DISEASE
     Route: 055
     Dates: start: 20091218, end: 20100125
  3. SENNA [Concomitant]
     Indication: CONSTIPATION PROPHYLAXIS
     Dosage: 8.6MG PER DAY
     Route: 048
     Dates: start: 20100306, end: 20100307

REACTIONS (1)
  - BRONCHITIS CHRONIC [None]
